FAERS Safety Report 7097924-6 (Version None)
Quarter: 2010Q4

REPORT INFORMATION
  Report Type: 
  Country: None (occurrence: None)
  Receive Date: 20101112
  Receipt Date: 20101101
  Transmission Date: 20110411
  Serious: Yes (Other)
  Sender: FDA-Public Use
  Company Number: US-JNJFOC-20100703977

PATIENT
  Sex: Female

DRUGS (5)
  1. LEVAQUIN [Suspect]
     Indication: PROPHYLAXIS
     Route: 048
  2. LEVAQUIN [Suspect]
     Indication: INFECTION
     Route: 048
  3. CIPROFLOXACIN [Suspect]
     Indication: INFECTION
     Route: 065
  4. PREDNISONE [Suspect]
     Indication: CHRONIC OBSTRUCTIVE PULMONARY DISEASE
     Route: 048
  5. METHYLPREDNISOLONE [Suspect]
     Indication: CHRONIC OBSTRUCTIVE PULMONARY DISEASE
     Route: 065

REACTIONS (1)
  - ROTATOR CUFF SYNDROME [None]
